FAERS Safety Report 15110553 (Version 1)
Quarter: 2018Q3

REPORT INFORMATION
  Report Type: Spontaneous
  Country: FR (occurrence: FR)
  Receive Date: 20180705
  Receipt Date: 20180705
  Transmission Date: 20181010
  Serious: Yes (Hospitalization)
  Sender: FDA-Public Use
  Company Number: FR-PFIZER INC-2018267904

PATIENT
  Age: 62 Year
  Sex: Female
  Weight: 78 kg

DRUGS (7)
  1. PARACETAMOL [Concomitant]
     Active Substance: ACETAMINOPHEN
  2. IBUPROFEN. [Suspect]
     Active Substance: IBUPROFEN
     Indication: VIRAL PHARYNGITIS
     Route: 048
     Dates: start: 20180228
  3. AMOXICILLIN SODIUM [Concomitant]
     Active Substance: AMOXICILLIN SODIUM
  4. IBUPROFEN. [Suspect]
     Active Substance: IBUPROFEN
     Indication: OROPHARYNGEAL PAIN
  5. ASPIRINE [Suspect]
     Active Substance: ASPIRIN
     Indication: VIRAL PHARYNGITIS
     Dosage: 2 G, 1X/DAY
     Route: 048
     Dates: start: 20180312
  6. ASPIRINE [Suspect]
     Active Substance: ASPIRIN
     Indication: OROPHARYNGEAL PAIN
  7. CODEINE [Concomitant]
     Active Substance: CODEINE

REACTIONS (1)
  - Vascular purpura [Recovering/Resolving]

NARRATIVE: CASE EVENT DATE: 20180312
